FAERS Safety Report 4784777-1 (Version None)
Quarter: 2005Q3

REPORT INFORMATION
  Report Type: 
  Country: None (occurrence: None)
  Receive Date: 20050928
  Receipt Date: 20050909
  Transmission Date: 20060218
  Serious: Yes (Hospitalization, Other)
  Sender: FDA-Public Use
  Company Number: US_0504115864

PATIENT
  Age: 36 Year
  Sex: Female
  Weight: 60 kg

DRUGS (2)
  1. ZYPREXA [Suspect]
     Indication: PSYCHOTIC DISORDER
     Dosage: 10 MG DAY
     Dates: start: 20000208, end: 20041001
  2. REMERON [Concomitant]

REACTIONS (11)
  - ALCOHOLISM [None]
  - ANXIETY [None]
  - CAESAREAN SECTION [None]
  - DIABETES MELLITUS NON-INSULIN-DEPENDENT [None]
  - DRUG EXPOSURE DURING PREGNANCY [None]
  - GESTATIONAL DIABETES [None]
  - MALAISE [None]
  - NAUSEA [None]
  - PRE-ECLAMPSIA [None]
  - PREGNANCY [None]
  - VOMITING [None]
